FAERS Safety Report 24740502 (Version 4)
Quarter: 2025Q1

REPORT INFORMATION
  Report Type: Report from Study
  Country: KR (occurrence: KR)
  Receive Date: 20241216
  Receipt Date: 20250102
  Transmission Date: 20250408
  Serious: Yes (Other)
  Sender: AMGEN
  Company Number: KR-AMGEN-KORNI2024244128

PATIENT
  Age: 74 Year
  Sex: Male

DRUGS (5)
  1. TARLATAMAB [Suspect]
     Active Substance: TARLATAMAB
     Indication: Small cell lung cancer
     Route: 040
     Dates: start: 20240726, end: 20241118
  2. DEXAMETHASONE [Concomitant]
     Active Substance: DEXAMETHASONE
     Route: 040
     Dates: start: 20241010
  3. GASTER [Concomitant]
     Active Substance: FAMOTIDINE
     Route: 040
     Dates: start: 20241010
  4. SOLONDO [Concomitant]
     Dates: start: 20241011, end: 20241018
  5. PANTOPRAZOLE SODIUM [Concomitant]
     Active Substance: PANTOPRAZOLE SODIUM
     Dosage: UNK UNK, QD
     Dates: start: 20241011, end: 20241018

REACTIONS (1)
  - Small cell lung cancer [Unknown]

NARRATIVE: CASE EVENT DATE: 20241129
